FAERS Safety Report 11793269 (Version 1)
Quarter: 2015Q4

REPORT INFORMATION
  Report Type: Spontaneous
  Country: US (occurrence: US)
  Receive Date: 20151202
  Receipt Date: 20151202
  Transmission Date: 20160305
  Serious: No
  Sender: FDA-Public Use
  Company Number: US-PFIZER INC-2015359655

PATIENT
  Sex: Female

DRUGS (2)
  1. SULFA /00076401/ [Suspect]
     Active Substance: SULFADIAZINE
  2. SULFASALAZINE. [Suspect]
     Active Substance: SULFASALAZINE

REACTIONS (1)
  - Drug hypersensitivity [Not Recovered/Not Resolved]
